FAERS Safety Report 11875465 (Version 1)
Quarter: 2015Q4

REPORT INFORMATION
  Report Type: Spontaneous
  Country: US (occurrence: US)
  Receive Date: 20151229
  Receipt Date: 20151229
  Transmission Date: 20160305
  Serious: Yes (Other)
  Sender: FDA-Public Use
  Company Number: CHPA2015US015019

PATIENT
  Age: 66 Year
  Sex: Female

DRUGS (1)
  1. THERAFLU EXPRESSMAX NIGHTTIME SEVERE COLD AND COUGH [Suspect]
     Active Substance: ACETAMINOPHEN\DIPHENHYDRAMINE HYDROCHLORIDE\PHENYLEPHRINE HYDROCHLORIDE
     Indication: OROPHARYNGEAL PAIN
     Dosage: UNK
     Route: 048
     Dates: start: 201512, end: 201512

REACTIONS (4)
  - Suffocation feeling [Recovered/Resolved]
  - Asthma [Recovered/Resolved]
  - Cough [Not Recovered/Not Resolved]
  - Choking sensation [Recovered/Resolved]

NARRATIVE: CASE EVENT DATE: 201512
